FAERS Safety Report 5377866-4 (Version None)
Quarter: 2007Q2

REPORT INFORMATION
  Report Type: 
  Country: None (occurrence: None)
  Receive Date: 20070629
  Receipt Date: 20070605
  Transmission Date: 20071010
  Serious: Yes (Other)
  Sender: FDA-Public Use
  Company Number: 200702IM000082

PATIENT
  Age: 74 Year
  Sex: Male
  Weight: 93.6 kg

DRUGS (22)
  1. INTERFERON GAMMA-1B [Suspect]
     Indication: IDIOPATHIC PULMONARY FIBROSIS
     Dosage: 100 UG; TIW; SUBCUTANEOUS
     Route: 058
     Dates: start: 20051110, end: 20070209
  2. RANITIDINE [Concomitant]
  3. ATORVASTATIN [Concomitant]
  4. HYDROCODONE W/APAP [Concomitant]
  5. AVANDIA [Concomitant]
  6. FENOFIBRATE [Concomitant]
  7. PARACETAMOL [Concomitant]
  8. FEXOFENADINE [Concomitant]
  9. ADVAIR DISKUS 100/50 [Concomitant]
  10. VITAMIN CAP [Concomitant]
  11. CELECOXIB [Concomitant]
  12. ATENOLOL [Concomitant]
  13. LORAZEPAM [Concomitant]
  14. ASPIRIN [Concomitant]
  15. ESCITALOPRAM OXALATE [Concomitant]
  16. ACETAMINOPHEN [Concomitant]
  17. ALLEGRA [Concomitant]
  18. ATENOLOL [Concomitant]
  19. CELEBREX [Concomitant]
  20. LEXAPRO [Concomitant]
  21. LIPITOR [Concomitant]
  22. TRICOR [Concomitant]

REACTIONS (1)
  - TRANSITIONAL CELL CARCINOMA [None]
